FAERS Safety Report 11561526 (Version 1)
Quarter: 2015Q3

REPORT INFORMATION
  Report Type: Spontaneous
  Country: FR (occurrence: FR)
  Receive Date: 20150928
  Receipt Date: 20150928
  Transmission Date: 20151125
  Serious: Yes (Hospitalization)
  Sender: FDA-Public Use
  Company Number: FR-009507513-1509FRA013186

PATIENT
  Age: 77 Year
  Sex: Male

DRUGS (5)
  1. DAIVOBET [Suspect]
     Active Substance: BETAMETHASONE DIPROPIONATE\CALCIPOTRIENE
     Dosage: UNK
     Route: 061
     Dates: end: 20150901
  2. XARELTO [Concomitant]
     Active Substance: RIVAROXABAN
     Dosage: 20 MG, QD
     Route: 048
     Dates: start: 20150806, end: 20150820
  3. LANGORAN LP 40 [Suspect]
     Active Substance: ISOSORBIDE DINITRATE
     Dosage: UNK
     Route: 048
     Dates: end: 20150901
  4. INEGY [Suspect]
     Active Substance: EZETIMIBE\SIMVASTATIN
     Dosage: ^10-20^
     Route: 048
     Dates: end: 20150901
  5. CORDARONE [Suspect]
     Active Substance: AMIODARONE HYDROCHLORIDE
     Dosage: 200 MG, QD
     Route: 048
     Dates: start: 20150806, end: 20150901

REACTIONS (1)
  - Thrombocytopenic purpura [Recovering/Resolving]

NARRATIVE: CASE EVENT DATE: 20150829
